FAERS Safety Report 21851929 (Version 1)
Quarter: 2023Q1

REPORT INFORMATION
  Report Type: Spontaneous
  Country: US (occurrence: US)
  Receive Date: 20230112
  Receipt Date: 20230112
  Transmission Date: 20230417
  Serious: No
  Sender: FDA-Public Use
  Company Number: US-TEVA-2023-US-2843084

PATIENT
  Age: 54 Year
  Sex: Male

DRUGS (3)
  1. CLONAZEPAM [Suspect]
     Active Substance: CLONAZEPAM
     Indication: Sleep disorder
     Dosage: 3 TABLETS AT BEDTIME
     Route: 065
     Dates: start: 2007
  2. CLONAZEPAM [Suspect]
     Active Substance: CLONAZEPAM
     Indication: Restless legs syndrome
     Dosage: 0.5MG THREE A DAY
     Route: 065
  3. BENADRYL [Suspect]
     Active Substance: DIPHENHYDRAMINE HYDROCHLORIDE
     Indication: Sleep disorder
     Route: 065

REACTIONS (10)
  - Product physical issue [Unknown]
  - Product use in unapproved indication [Unknown]
  - Poor quality sleep [Not Recovered/Not Resolved]
  - Inappropriate schedule of product administration [Unknown]
  - Knee operation [Unknown]
  - Limb discomfort [Not Recovered/Not Resolved]
  - Depression [Unknown]
  - Obsessive-compulsive disorder [Unknown]
  - Fatigue [Unknown]
  - Therapeutic product effect incomplete [Unknown]
